FAERS Safety Report 9331144 (Version 2)
Quarter: 2013Q2

REPORT INFORMATION
  Report Type: Spontaneous
  Country: GB (occurrence: None)
  Receive Date: 20130531
  Receipt Date: 20130604
  Transmission Date: 20140414
  Serious: Yes (Other)
  Sender: FDA-Public Use
  Company Number: AUR-APL-2013-04363

PATIENT
  Age: 36 Year
  Sex: Female
  Weight: 72 kg

DRUGS (5)
  1. LAMOTRIGINE [Suspect]
     Indication: BIPOLAR DISORDER
     Dosage: 200 MG, 2 IN 1 D
     Route: 048
     Dates: start: 201010
  2. TOPIRAMATE [Suspect]
     Indication: BIPOLAR DISORDER
     Dosage: 100 MG, 2 IN 1 D
     Route: 048
     Dates: start: 201101, end: 201305
  3. CO-CODAMOL (PANADEINE CO) [Concomitant]
  4. FEMODENE (FEMODENE) [Concomitant]
  5. ESCITALOPRAM (ESCITALOPRAM) [Concomitant]

REACTIONS (1)
  - Vitamin D deficiency [None]
